FAERS Safety Report 9984696 (Version 2)
Quarter: 2014Q2

REPORT INFORMATION
  Report Type: Spontaneous
  Country: US (occurrence: US)
  Receive Date: 20140307
  Receipt Date: 20140606
  Transmission Date: 20141212
  Serious: No
  Sender: FDA-Public Use
  Company Number: US-GLAXOSMITHKLINE-A1060012A

PATIENT
  Age: 62 Year
  Sex: Female

DRUGS (12)
  1. BREO ELLIPTA [Suspect]
     Indication: CHRONIC OBSTRUCTIVE PULMONARY DISEASE
     Dosage: 1PUFF PER DAY
     Route: 055
     Dates: start: 20140109
  2. SYMBICORT [Suspect]
     Indication: CHRONIC OBSTRUCTIVE PULMONARY DISEASE
     Route: 055
     Dates: start: 201401
  3. CELEBREX [Concomitant]
  4. OMEPRAZOLE [Concomitant]
  5. LEVOTHYROXINE [Concomitant]
  6. LOSARTAN [Concomitant]
  7. LORATADINE [Concomitant]
  8. PAROXETINE [Concomitant]
  9. FLONASE NASAL SPRAY [Concomitant]
  10. WARFARIN [Concomitant]
  11. VERAPAMIL [Concomitant]
  12. ZOLPIDEM [Concomitant]

REACTIONS (1)
  - Mania [Recovering/Resolving]
